FAERS Safety Report 22013507 (Version 3)
Quarter: 2023Q1

REPORT INFORMATION
  Report Type: Report from Study
  Country: BR (occurrence: BR)
  Receive Date: 20230220
  Receipt Date: 20230224
  Transmission Date: 20230417
  Serious: Yes (Hospitalization)
  Sender: FDA-Public Use
  Company Number: BR-BIOGEN-2023BI01188719

PATIENT
  Sex: Female
  Weight: 54 kg

DRUGS (15)
  1. TYSABRI [Suspect]
     Active Substance: NATALIZUMAB
     Indication: Multiple sclerosis
     Route: 050
     Dates: end: 202212
  2. AVONEX PEN [Suspect]
     Active Substance: INTERFERON BETA-1A
     Indication: Multiple sclerosis
     Route: 050
     Dates: start: 2006
  3. AVONEX PEN [Suspect]
     Active Substance: INTERFERON BETA-1A
     Route: 050
  4. GABAPENTIN [Concomitant]
     Active Substance: GABAPENTIN
     Indication: Motor dysfunction
     Route: 050
     Dates: start: 1998
  5. GABAPENTIN [Concomitant]
     Active Substance: GABAPENTIN
     Route: 050
  6. OPTIVE EYE DROPS [Concomitant]
     Indication: Eye lubrication therapy
     Dosage: OCULAR
     Route: 050
     Dates: start: 2017
  7. DIPYRONE [Concomitant]
     Active Substance: DIPYRONE
     Indication: Pain
     Route: 050
     Dates: start: 2008
  8. MAXIDEX [Concomitant]
     Active Substance: DEXAMETHASONE
     Indication: Glaucoma
     Dosage: 2 DROPS - OCULAR
     Route: 050
     Dates: start: 2006
  9. TRAZODONE HYDROCHLORIDE [Concomitant]
     Active Substance: TRAZODONE HYDROCHLORIDE
     Indication: Antidepressant therapy
     Route: 050
     Dates: start: 2018
  10. PANTOPRAZOLE [Concomitant]
     Active Substance: PANTOPRAZOLE
     Indication: Gastrointestinal disorder prophylaxis
     Dosage: BEFORE MAIN MEALS
     Route: 050
  11. ONDANSETRON HYDROCHLORIDE [Concomitant]
     Active Substance: ONDANSETRON HYDROCHLORIDE
     Indication: Headache
     Route: 050
  12. KETOPROFEN [Concomitant]
     Active Substance: KETOPROFEN
     Indication: Headache
     Route: 050
  13. CEFALIV [Concomitant]
     Indication: Headache
     Dosage: WHEN IN PAIN
     Route: 050
  14. TIMOLOL [Concomitant]
     Active Substance: TIMOLOL
     Indication: Cataract
     Dosage: OCULAR USE
     Route: 050
  15. CORTICOSTEROID NOS [Concomitant]
     Active Substance: CORTICOSTEROID NOS
     Indication: Glaucoma
     Route: 050

REACTIONS (1)
  - Intestinal polyp [Recovered/Resolved]
